FAERS Safety Report 25640299 (Version 1)
Quarter: 2025Q3

REPORT INFORMATION
  Report Type: Spontaneous
  Country: US (occurrence: US)
  Receive Date: 20250804
  Receipt Date: 20250804
  Transmission Date: 20251020
  Serious: Yes (Other)
  Sender: NOVO NORDISK
  Company Number: US-NOVOPROD-1488176

PATIENT
  Age: 40 Year

DRUGS (1)
  1. SAXENDA [Suspect]
     Active Substance: LIRAGLUTIDE
     Indication: Weight control
     Dates: start: 202001, end: 202204

REACTIONS (2)
  - Gallbladder injury [Not Recovered/Not Resolved]
  - Emotional distress [Not Recovered/Not Resolved]
